FAERS Safety Report 7261032-1 (Version None)
Quarter: 2011Q1

REPORT INFORMATION
  Report Type: 
  Country: None (occurrence: None)
  Receive Date: 20110130
  Receipt Date: 20101112
  Transmission Date: 20110831
  Serious: No
  Sender: FDA-Public Use
  Company Number: US-ABBOTT-10P-163-0685338-00

PATIENT
  Sex: Male
  Weight: 70.37 kg

DRUGS (2)
  1. HUMIRA [Suspect]
     Dosage: ON HOLD SINCE NOV 2010 DUE TO EVENT.
     Dates: start: 20100901
  2. HUMIRA [Suspect]
     Indication: ANKYLOSING SPONDYLITIS
     Dates: start: 20080101, end: 20100101

REACTIONS (2)
  - COUGH [None]
  - PAIN [None]
